FAERS Safety Report 6963975-2 (Version None)
Quarter: 2010Q3

REPORT INFORMATION
  Report Type: 
  Country: None (occurrence: None)
  Receive Date: 20100902
  Receipt Date: 20100902
  Transmission Date: 20110219
  Serious: No
  Sender: FDA-Public Use
  Company Number: None

PATIENT
  Age: 52 Year
  Sex: Female
  Weight: 77.1115 kg

DRUGS (1)
  1. METFORMIN HCL [Suspect]
     Indication: DIABETES MELLITUS
     Dosage: 2 TABLETS TWICE PER DAY PO
     Route: 048
     Dates: start: 20100801, end: 20100831

REACTIONS (4)
  - HEADACHE [None]
  - NAUSEA [None]
  - PAROSMIA [None]
  - PRODUCT ODOUR ABNORMAL [None]
